FAERS Safety Report 17286734 (Version 2)
Quarter: 2020Q3

REPORT INFORMATION
  Report Type: Spontaneous
  Country: US (occurrence: US)
  Receive Date: 20200119
  Receipt Date: 20200727
  Transmission Date: 20201102
  Serious: No
  Sender: FDA-Public Use
  Company Number: US-AMGEN-USASP2020006785

PATIENT
  Sex: Female

DRUGS (2)
  1. ENBREL [Suspect]
     Active Substance: ETANERCEPT
     Dosage: 50 MILLIGRAM, QWK
     Route: 058
  2. ENBREL [Suspect]
     Active Substance: ETANERCEPT
     Indication: RHEUMATOID ARTHRITIS
     Dosage: 50 MILLIGRAM, QWK
     Route: 058
     Dates: start: 20190515

REACTIONS (4)
  - Product dose omission issue [Unknown]
  - Injection site erythema [Unknown]
  - Injection site swelling [Unknown]
  - Injection site pruritus [Unknown]
